FAERS Safety Report 18915114 (Version 1)
Quarter: 2021Q1

REPORT INFORMATION
  Report Type: Spontaneous
  Country: US (occurrence: US)
  Receive Date: 20210219
  Receipt Date: 20210219
  Transmission Date: 20210420
  Serious: Yes (Hospitalization)
  Sender: FDA-Public Use
  Company Number: None

PATIENT
  Age: 65 Year
  Sex: Male
  Weight: 91.5 kg

DRUGS (7)
  1. LISINOPRIL. [Concomitant]
     Active Substance: LISINOPRIL
     Dates: start: 20210202
  2. ESOMEPRAZOLE. [Concomitant]
     Active Substance: ESOMEPRAZOLE MAGNESIUM
     Dates: start: 20160419
  3. BAMLANIVIMAB. [Suspect]
     Active Substance: BAMLANIVIMAB
     Indication: COVID-19
     Dosage: ?          OTHER FREQUENCY:ONCE;?
     Route: 042
     Dates: start: 20210216, end: 20210216
  4. DICYCLOMINE [Concomitant]
     Active Substance: DICYCLOMINE HYDROCHLORIDE
     Dates: start: 20201208
  5. ALBUTEROL. [Concomitant]
     Active Substance: ALBUTEROL
     Dates: start: 20201006
  6. ONDANSETRON [Concomitant]
     Active Substance: ONDANSETRON
     Dates: start: 20210215
  7. IPRATROPIUM?ALBUTEROL [Concomitant]
     Active Substance: ALBUTEROL\IPRATROPIUM
     Dates: start: 20200106, end: 20210216

REACTIONS (12)
  - Rales [None]
  - COVID-19 [None]
  - Acute kidney injury [None]
  - Dehydration [None]
  - Tachypnoea [None]
  - Pneumonia viral [None]
  - Acute respiratory failure [None]
  - Breath sounds abnormal [None]
  - Lymphopenia [None]
  - Dyspnoea [None]
  - COVID-19 pneumonia [None]
  - Hypoxia [None]

NARRATIVE: CASE EVENT DATE: 20210217
